FAERS Safety Report 18500356 (Version 3)
Quarter: 2022Q2

REPORT INFORMATION
  Report Type: Report from Study
  Country: US (occurrence: None)
  Receive Date: 20201113
  Receipt Date: 20220409
  Transmission Date: 20220721
  Serious: Yes (Hospitalization)
  Sender: FDA-Public Use
  Company Number: US-ROCHE-2711170

PATIENT
  Age: 76 Year
  Sex: Female
  Weight: 89.4 kg

DRUGS (4)
  1. BEVACIZUMAB [Suspect]
     Active Substance: BEVACIZUMAB
     Indication: Non-small cell lung cancer
     Dosage: ON 04/JUN/2020, SHE RECEIVED LAST DOSE OF BEVACIZUMAB.
     Route: 042
     Dates: start: 20200109
  2. ATEZOLIZUMAB [Suspect]
     Active Substance: ATEZOLIZUMAB
     Indication: Non-small cell lung cancer
     Dosage: ON 15/OCT/2020, SHE RECEIVED LAST DOSE OF ATEZOLIZUMAB.
     Route: 041
     Dates: start: 20200109
  3. CARBOPLATIN [Suspect]
     Active Substance: CARBOPLATIN
     Indication: Non-small cell lung cancer
     Dosage: C1-4, ON 12/MAR/2020, SHE RECEIVED LAST DOSE OF CARBOPLATIN.
     Route: 042
     Dates: start: 20200109
  4. PEMETREXED [Suspect]
     Active Substance: PEMETREXED
     Indication: Non-small cell lung cancer
     Dosage: ON 15/OCT/2020, SHE RECEIVED LAST DOSE OF PEMETREXED.
     Route: 042
     Dates: start: 20200109

REACTIONS (2)
  - Anaemia [Recovered/Resolved]
  - Fall [Unknown]

NARRATIVE: CASE EVENT DATE: 20201031
